FAERS Safety Report 15373926 (Version 2)
Quarter: 2018Q4

REPORT INFORMATION
  Report Type: Report from Study
  Country: FR (occurrence: FR)
  Receive Date: 20180912
  Receipt Date: 20181001
  Transmission Date: 20190204
  Serious: Yes (Hospitalization)
  Sender: FDA-Public Use
  Company Number: FR-ROCHE-2182774

PATIENT
  Age: 81 Year
  Sex: Male
  Weight: 77.4 kg

DRUGS (55)
  1. OBINUTUZUMAB. [Suspect]
     Active Substance: OBINUTUZUMAB
     Indication: CHRONIC LYMPHOCYTIC LEUKAEMIA
     Dosage: C1D1?PLANNED INITIAL INFUSION RATE: 12.5 AND ACTUAL MAXIMAL INFUSION RATE: 25?START TIME: 13:00 AND
     Route: 042
     Dates: start: 20140305, end: 20140305
  2. BENDAMUSTINE [Suspect]
     Active Substance: BENDAMUSTINE
     Dosage: C2D2?START TIME: 14:50 AND END TIME: 15:50
     Route: 042
     Dates: start: 20140403, end: 20140403
  3. BENDAMUSTINE [Suspect]
     Active Substance: BENDAMUSTINE
     Dosage: C6D2?START TIME: 12:37 AND END TIME: 13:40
     Route: 042
     Dates: start: 20140724, end: 20140724
  4. PAROEX [Concomitant]
     Active Substance: CHLORHEXIDINE GLUCONATE
     Indication: PROPHYLAXIS
     Route: 048
     Dates: start: 20140316, end: 20140402
  5. CEFOTAXIME [Concomitant]
     Active Substance: CEFOTAXIME SODIUM
     Route: 042
     Dates: start: 20151009, end: 20151020
  6. ONDANSETRON [Concomitant]
     Active Substance: ONDANSETRON
     Indication: PREMEDICATION
     Dosage: BEFORE EACH ADMINISTRATION OF STUDY TREATMENT
     Route: 042
     Dates: start: 20140305, end: 20140724
  7. OBINUTUZUMAB. [Suspect]
     Active Substance: OBINUTUZUMAB
     Dosage: C1D2?PLANNED INITIAL INFUSION RATE: 50 AND ACTUAL MAXIMAL INFUSION RATE: 400?START TIME: 12:15 AND E
     Route: 042
     Dates: start: 20140306, end: 20140306
  8. OBINUTUZUMAB. [Suspect]
     Active Substance: OBINUTUZUMAB
     Dosage: C4D1?PLANNED INITIAL INFUSION RATE: 100 AND ACTUAL MAXIMAL INFUSION RATE: 400?START TIME: 11:00 AND
     Route: 042
     Dates: start: 20140527, end: 20140527
  9. BENDAMUSTINE [Suspect]
     Active Substance: BENDAMUSTINE
     Dosage: C6D1?START TIME: 15:35 AND END TIME: 16:35
     Route: 042
     Dates: start: 20140723, end: 20140723
  10. KARDEGIC [Concomitant]
     Active Substance: ASPIRIN DL-LYSINE
     Route: 048
     Dates: start: 2000
  11. MOPRAL [Concomitant]
     Active Substance: OMEPRAZOLE
     Indication: PROPHYLAXIS
     Route: 048
     Dates: start: 20140314, end: 20140428
  12. SOLUPRED (FRANCE) [Concomitant]
     Active Substance: PREDNISOLONE SODIUM METAZOATE
     Route: 048
     Dates: start: 201508, end: 201508
  13. PREDNISOLONE. [Concomitant]
     Active Substance: PREDNISOLONE
     Indication: PREMEDICATION
     Dosage: BEFORE EACH ADMINISTRATION OF STUDY TREATMENT
     Route: 042
     Dates: start: 20140305, end: 20140723
  14. OBINUTUZUMAB. [Suspect]
     Active Substance: OBINUTUZUMAB
     Dosage: C1D15?PLANNED INITIAL INFUSION RATE: 100 AND ACTUAL MAXIMAL INFUSION RATE: 400?START TIME: 11:30 AND
     Route: 042
     Dates: start: 20140319, end: 20140319
  15. BENDAMUSTINE [Suspect]
     Active Substance: BENDAMUSTINE
     Dosage: C1D2?START TIME: 17:00 AND END TIME: 18:15
     Route: 042
     Dates: start: 20140306, end: 20140306
  16. BENDAMUSTINE [Suspect]
     Active Substance: BENDAMUSTINE
     Dosage: C2D1?START TIME: 15:15 AND END TIME: 16:15
     Route: 042
     Dates: start: 20140402, end: 20140402
  17. BENDAMUSTINE [Suspect]
     Active Substance: BENDAMUSTINE
     Dosage: C4D1?START TIME: 15:00 AND END TIME: 16:00
     Route: 042
     Dates: start: 20140527, end: 20140527
  18. BENDAMUSTINE [Suspect]
     Active Substance: BENDAMUSTINE
     Dosage: C5D2?START TIME: 14:45 AND END TIME: 15:45
     Route: 042
     Dates: start: 20140626, end: 20140626
  19. ZELITREX [Concomitant]
     Active Substance: VALACYCLOVIR HYDROCHLORIDE
     Indication: PROPHYLAXIS
     Route: 048
     Dates: start: 20140314, end: 20141007
  20. PRIMPERAN [Concomitant]
     Active Substance: METOCLOPRAMIDE HYDROCHLORIDE
     Route: 048
     Dates: start: 20140626, end: 20140702
  21. ROVAMYCINE [Concomitant]
     Active Substance: SPIRAMYCIN
     Dosage: 3 10-6 UNITS
     Route: 048
     Dates: start: 20150819, end: 20150828
  22. PLATELETS [Concomitant]
     Active Substance: HUMAN PLATELET, ALLOGENIC
     Dosage: 7 UNITS/DAY
     Route: 065
     Dates: start: 20160421, end: 20160421
  23. OBINUTUZUMAB. [Suspect]
     Active Substance: OBINUTUZUMAB
     Dosage: C5D1?PLANNED INITIAL INFUSION RATE: 100 AND ACTUAL MAXIMAL INFUSION RATE: 400?START TIME: 11:00 AND
     Route: 042
     Dates: start: 20140625, end: 20140625
  24. BENDAMUSTINE [Suspect]
     Active Substance: BENDAMUSTINE
     Dosage: C3D1?START TIME: 15:50 AND END TIME: 16:50
     Route: 042
     Dates: start: 20140428, end: 20140428
  25. PERFALGAN [Concomitant]
     Active Substance: ACETAMINOPHEN
     Indication: PREMEDICATION
     Route: 042
     Dates: start: 20140305, end: 20140305
  26. CLAMOXYL (FRANCE) [Concomitant]
     Active Substance: AMOXICILLIN
     Route: 048
     Dates: start: 20150819, end: 20150828
  27. SOLU-MEDROL [Concomitant]
     Active Substance: METHYLPREDNISOLONE SODIUM SUCCINATE
     Route: 050
     Dates: start: 20150825, end: 20150909
  28. CEFOTAXIME [Concomitant]
     Active Substance: CEFOTAXIME SODIUM
     Route: 048
     Dates: start: 20150817, end: 20150819
  29. TINZAPARINE SODIQUE [Concomitant]
     Dosage: 16000 UI/DAY
     Route: 058
     Dates: start: 20150918, end: 20151001
  30. RED BLOOD CELLS [Concomitant]
     Active Substance: HUMAN RED BLOOD CELL
     Dosage: 1 UI/DAY
     Route: 042
     Dates: start: 20160413, end: 20160413
  31. OBINUTUZUMAB. [Suspect]
     Active Substance: OBINUTUZUMAB
     Dosage: C2D1?PLANNED INITIAL INFUSION RATE: 100 AND ACTUAL MAXIMAL INFUSION RATE: 400?START TIME: 11:00 AND
     Route: 042
     Dates: start: 20140402, end: 20140402
  32. OBINUTUZUMAB. [Suspect]
     Active Substance: OBINUTUZUMAB
     Dosage: C3D1?PLANNED INITIAL INFUSION RATE: 100 AND ACTUAL MAXIMAL INFUSION RATE: 400?START TIME: 11:50 AND
     Route: 042
     Dates: start: 20140428, end: 20140428
  33. OBINUTUZUMAB. [Suspect]
     Active Substance: OBINUTUZUMAB
     Dosage: C6D1?PLANNED INITIAL INFUSION RATE: 100 AND ACTUAL MAXIMAL INFUSION RATE: 400?START TIME: 11:30 AND
     Route: 042
     Dates: start: 20140723, end: 20140723
  34. BENDAMUSTINE [Suspect]
     Active Substance: BENDAMUSTINE
     Dosage: C3D2?START TIME: 16:10 AND END TIME: 17:10
     Route: 042
     Dates: start: 20140429, end: 20140429
  35. BENDAMUSTINE [Suspect]
     Active Substance: BENDAMUSTINE
     Dosage: C4D2?START TIME: 15:15 AND END TIME: 16:15
     Route: 042
     Dates: start: 20140528, end: 20140528
  36. ZELITREX [Concomitant]
     Active Substance: VALACYCLOVIR HYDROCHLORIDE
     Route: 048
     Dates: start: 20141017, end: 20141127
  37. FUNGIZONE [Concomitant]
     Active Substance: AMPHOTERICIN B
     Indication: PROPHYLAXIS
     Route: 048
     Dates: start: 20140316, end: 20140402
  38. SOLUPRED (FRANCE) [Concomitant]
     Active Substance: PREDNISOLONE SODIUM METAZOATE
     Route: 048
     Dates: start: 20150814, end: 20150818
  39. RED BLOOD CELLS [Concomitant]
     Active Substance: HUMAN RED BLOOD CELL
     Dosage: 1 UI/DAY
     Route: 042
     Dates: start: 20160407, end: 20160407
  40. RED BLOOD CELLS [Concomitant]
     Active Substance: HUMAN RED BLOOD CELL
     Dosage: 1 UI/DAY
     Route: 042
     Dates: start: 20160417, end: 20160417
  41. BENDAMUSTINE [Suspect]
     Active Substance: BENDAMUSTINE
     Dosage: C5D1?START TIME: 15:15 AND END TIME: 16:15
     Route: 042
     Dates: start: 20140625, end: 20140625
  42. SIMVASTATINE [Concomitant]
     Active Substance: SIMVASTATIN
     Route: 048
     Dates: start: 2006
  43. GAVISCON (ALGINIC ACID) [Concomitant]
     Active Substance: ALGINIC ACID
     Dosage: 1 TABLESPOON
     Route: 048
     Dates: start: 1995
  44. PERFALGAN [Concomitant]
     Active Substance: ACETAMINOPHEN
     Dosage: BEFORE EACH ADMINISTRATION OF STUDY TREATMENT
     Route: 042
     Dates: start: 20140305, end: 20140723
  45. POLARAMINE [Concomitant]
     Active Substance: DEXCHLORPHENIRAMINE MALEATE
     Indication: PREMEDICATION
     Route: 042
     Dates: start: 20140305, end: 20140305
  46. PRIMPERAN [Concomitant]
     Active Substance: METOCLOPRAMIDE HYDROCHLORIDE
     Route: 048
     Dates: start: 20140725, end: 20140725
  47. POLARAMINE [Concomitant]
     Active Substance: DEXCHLORPHENIRAMINE MALEATE
     Dosage: BEFORE EACH ADMINISTRATION OF STUDY TREATMENT
     Route: 050
     Dates: start: 20140305, end: 20140723
  48. BACTRIM [Concomitant]
     Active Substance: SULFAMETHOXAZOLE\TRIMETHOPRIM
     Indication: PROPHYLAXIS
     Route: 048
     Dates: start: 20140314, end: 20141007
  49. PRIMPERAN [Concomitant]
     Active Substance: METOCLOPRAMIDE HYDROCHLORIDE
     Route: 048
     Dates: start: 20140528, end: 20140529
  50. AUGMENTIN [Concomitant]
     Active Substance: AMOXICILLIN\CLAVULANATE POTASSIUM
     Route: 048
     Dates: start: 20150810, end: 20150823
  51. ORELOX [Concomitant]
     Active Substance: CEFPODOXIME
     Route: 048
     Dates: start: 20150817, end: 20150819
  52. RED BLOOD CELLS [Concomitant]
     Active Substance: HUMAN RED BLOOD CELL
     Dosage: 1 UI/DAY
     Route: 042
     Dates: start: 20160409, end: 20160409
  53. OBINUTUZUMAB. [Suspect]
     Active Substance: OBINUTUZUMAB
     Dosage: C1D8?PLANNED INITIAL INFUSION RATE: 50 AND ACTUAL MAXIMAL INFUSION RATE: 400?START TIME: 13:35 AND E
     Route: 042
     Dates: start: 20140312, end: 20140312
  54. BENDAMUSTINE [Suspect]
     Active Substance: BENDAMUSTINE
     Indication: CHRONIC LYMPHOCYTIC LEUKAEMIA
     Dosage: C1D1?START TIME: 15:25 AND END TIME: 19:00
     Route: 042
     Dates: start: 20140305, end: 20140305
  55. WARFARIN [Concomitant]
     Active Substance: WARFARIN
     Route: 048
     Dates: start: 20150930, end: 20160329

REACTIONS (2)
  - Pyrexia [Recovered/Resolved]
  - Respiratory distress [Recovered/Resolved]

NARRATIVE: CASE EVENT DATE: 20171119
